FAERS Safety Report 4438622-4 (Version None)
Quarter: 2004Q3

REPORT INFORMATION
  Report Type: 
  Country: None (occurrence: None)
  Receive Date: 20040728
  Receipt Date: 20040504
  Transmission Date: 20050211
  Serious: No
  Sender: FDA-Public Use
  Company Number: USA040566707

PATIENT
  Age: 53 Year
  Sex: Male
  Weight: 73 kg

DRUGS (3)
  1. STRATTERA [Suspect]
     Dosage: 80 MG IN THE MORNING
     Dates: start: 20040414
  2. ALLEGRA [Concomitant]
  3. MULTIVITAMIN [Concomitant]

REACTIONS (5)
  - DISORIENTATION [None]
  - DRUG EFFECT DECREASED [None]
  - MIDDLE INSOMNIA [None]
  - NAUSEA [None]
  - SOMNOLENCE [None]
